FAERS Safety Report 9441579 (Version 2)
Quarter: 2013Q3

REPORT INFORMATION
  Report Type: Spontaneous
  Country: US (occurrence: US)
  Receive Date: 20130805
  Receipt Date: 20130823
  Transmission Date: 20140515
  Serious: No
  Sender: FDA-Public Use
  Company Number: US-009507513-1307USA016275

PATIENT
  Age: 20 Year
  Sex: Female

DRUGS (1)
  1. NUVARING [Suspect]
     Indication: CONTRACEPTION
     Dosage: 1 RING, EVERY 3 WEEKS IN, 1 WEEK OUT
     Route: 067
     Dates: start: 20130712

REACTIONS (2)
  - Muscle spasms [Unknown]
  - Metrorrhagia [Unknown]
